FAERS Safety Report 18521873 (Version 2)
Quarter: 2021Q3

REPORT INFORMATION
  Report Type: Spontaneous
  Country: US (occurrence: US)
  Receive Date: 20201119
  Receipt Date: 20210823
  Transmission Date: 20211014
  Serious: No
  Sender: FDA-Public Use
  Company Number: NVSC2020US302833

PATIENT
  Sex: Female

DRUGS (5)
  1. VITAMIN B12 [Concomitant]
     Active Substance: CYANOCOBALAMIN
     Indication: PRODUCT USED FOR UNKNOWN INDICATION
     Dosage: UNK
     Route: 065
  2. PREDNISONE. [Concomitant]
     Active Substance: PREDNISONE
     Indication: PRODUCT USED FOR UNKNOWN INDICATION
     Dosage: UNK
     Route: 065
  3. PANADOL [Concomitant]
     Active Substance: ACETAMINOPHEN
     Indication: PRODUCT USED FOR UNKNOWN INDICATION
     Dosage: UNK
     Route: 065
  4. CENTRUM [Concomitant]
     Active Substance: VITAMINS
     Indication: PRODUCT USED FOR UNKNOWN INDICATION
     Dosage: UNK
     Route: 065
  5. KESIMPTA [Suspect]
     Active Substance: OFATUMUMAB
     Indication: MULTIPLE SCLEROSIS
     Dosage: 1 DF STARTING AT WEEK 4 AS DIRECTED
     Route: 058

REACTIONS (7)
  - Fatigue [Recovered/Resolved with Sequelae]
  - Tremor [Recovered/Resolved with Sequelae]
  - Chills [Recovered/Resolved with Sequelae]
  - Pyrexia [Recovered/Resolved with Sequelae]
  - Pain [Recovered/Resolved with Sequelae]
  - Mobility decreased [Recovered/Resolved with Sequelae]
  - Asthenia [Recovered/Resolved with Sequelae]
